FAERS Safety Report 8008543-9 (Version None)
Quarter: 2011Q4

REPORT INFORMATION
  Report Type: 
  Country: None (occurrence: None)
  Receive Date: 20111222
  Receipt Date: 20111222
  Transmission Date: 20120403
  Serious: Yes (Hospitalization)
  Sender: FDA-Public Use
  Company Number: None

PATIENT
  Age: 71 Year
  Sex: Male

DRUGS (4)
  1. ERLOTINIB HYDROCHLORIDE [Suspect]
     Indication: SQUAMOUS CELL CARCINOMA
     Dosage: 150MG PO DAILY
     Route: 048
     Dates: start: 20110623
  2. ERLOTINIB HYDROCHLORIDE [Suspect]
     Indication: NEOPLASM RECURRENCE
     Dosage: 150MG PO DAILY
     Route: 048
     Dates: start: 20110623
  3. ERLOTINIB HYDROCHLORIDE [Suspect]
     Indication: SQUAMOUS CELL CARCINOMA
     Dosage: 150MG PO DAILY
     Route: 048
     Dates: start: 20111129
  4. ERLOTINIB HYDROCHLORIDE [Suspect]
     Indication: NEOPLASM RECURRENCE
     Dosage: 150MG PO DAILY
     Route: 048
     Dates: start: 20111129

REACTIONS (1)
  - ACUTE MYOCARDIAL INFARCTION [None]
